FAERS Safety Report 10164236 (Version 1)
Quarter: 2014Q2

REPORT INFORMATION
  Report Type: Spontaneous
  Country: US (occurrence: US)
  Receive Date: 20140510
  Receipt Date: 20140510
  Transmission Date: 20141212
  Serious: No
  Sender: FDA-Public Use
  Company Number: US-BRISTOL-MYERS SQUIBB COMPANY-20023974

PATIENT
  Age: 72 Year
  Sex: Female
  Weight: 79.82 kg

DRUGS (3)
  1. BYETTA PEN DISPOSABLE [Suspect]
  2. LANTUS [Concomitant]
     Dosage: 40UNITS AT NIGHT
  3. NOVOLOG [Concomitant]
     Dosage: 15UNITS BEFORE LUNCH AND DINNER

REACTIONS (4)
  - Abdominal discomfort [Unknown]
  - Weight decreased [Unknown]
  - Nausea [Unknown]
  - Fatigue [Unknown]
